FAERS Safety Report 18343724 (Version 1)
Quarter: 2020Q4

REPORT INFORMATION
  Report Type: Spontaneous
  Country: US (occurrence: US)
  Receive Date: 20201004
  Receipt Date: 20201004
  Transmission Date: 20210114
  Serious: No
  Sender: FDA-Public Use
  Company Number: None

PATIENT
  Age: 49 Year
  Sex: Female
  Weight: 117.36 kg

DRUGS (17)
  1. OMEPRAZOLE. [Concomitant]
     Active Substance: OMEPRAZOLE
  2. METOPROLOL TARTRATE. [Concomitant]
     Active Substance: METOPROLOL TARTRATE
  3. VYVANSE [Concomitant]
     Active Substance: LISDEXAMFETAMINE DIMESYLATE
  4. CAPECITABINE. [Suspect]
     Active Substance: CAPECITABINE
     Indication: BREAST CANCER FEMALE
     Route: 048
     Dates: start: 20200611
  5. AMITRIPTYLINE 25MG [Concomitant]
     Active Substance: AMITRIPTYLINE
  6. POLYETHYLENE GLYCOL [Concomitant]
     Active Substance: POLYETHYLENE GLYCOLS
  7. TIZANIDINE 4MG [Concomitant]
     Active Substance: TIZANIDINE
  8. MAGIC MOUTHWASH [Concomitant]
     Active Substance: DIPHENHYDRAMINE HYDROCHLORIDE\LIDOCAINE HYDROCHLORIDE\NYSTATIN
  9. REGLAN [Concomitant]
     Active Substance: METOCLOPRAMIDE HYDROCHLORIDE
  10. LOMOTIL 2.5-0.025MG [Concomitant]
  11. SOOTHE HYDRATION 1.25% [Concomitant]
  12. ALBUTEROL SULFATE HFA [Concomitant]
     Active Substance: ALBUTEROL SULFATE
  13. LAMOTRIGINE 25MG [Concomitant]
     Active Substance: LAMOTRIGINE
  14. SPIRONOLACTONE 100MG [Concomitant]
     Active Substance: SPIRONOLACTONE
  15. FERROUS SULFATE 325MG [Concomitant]
     Active Substance: FERROUS SULFATE
  16. AMITRIPTYLINE 100MG [Concomitant]
  17. UREA 10% [Concomitant]

REACTIONS (1)
  - Wrong technique in product usage process [None]

NARRATIVE: CASE EVENT DATE: 20201004
